FAERS Safety Report 8912807 (Version 1)
Quarter: 2012Q4

REPORT INFORMATION
  Report Type: 
  Country: BE (occurrence: BE)
  Receive Date: 20121115
  Receipt Date: 20121115
  Transmission Date: 20130627
  Serious: Yes (Death, Life-Threatening)
  Sender: FDA-Public Use
  Company Number: BE-CELGENEUS-013-21880-12090775

PATIENT
  Age: 71 Year
  Sex: Male

DRUGS (7)
  1. REVLIMID [Suspect]
     Indication: CLL
     Dosage: 5 Milligram
     Route: 048
     Dates: start: 20120113, end: 20120128
  2. CO-TRIMOXAZOLE [Concomitant]
     Indication: DRUG USE FOR UNKNOWN INDICATION
     Dosage: 160/80
     Route: 065
  3. PANTOMED [Concomitant]
     Indication: DRUG USE FOR UNKNOWN INDICATION
     Dosage: 40 Milligram
     Route: 065
  4. ASAFLOW [Concomitant]
     Indication: DRUG USE FOR UNKNOWN INDICATION
     Dosage: 80 Milligram
     Route: 065
  5. BISOPROLOL [Concomitant]
     Indication: DRUG USE FOR UNKNOWN INDICATION
     Dosage: 5 Milligram
     Route: 065
  6. ALLOPURINOL [Concomitant]
     Indication: DRUG USE FOR UNKNOWN INDICATION
     Dosage: 300 Milligram
     Route: 065
  7. SODIUM BICARBONATE [Concomitant]
     Indication: DRUG USE FOR UNKNOWN INDICATION
     Dosage: 3 Gram
     Route: 065

REACTIONS (1)
  - Sepsis [Fatal]
